FAERS Safety Report 10349324 (Version 2)
Quarter: 2014Q3

REPORT INFORMATION
  Report Type: Spontaneous
  Country: CZ (occurrence: CZ)
  Receive Date: 20140730
  Receipt Date: 20140730
  Transmission Date: 20150326
  Serious: Yes (Hospitalization)
  Sender: FDA-Public Use
  Company Number: CZ-ROCHE-1417255

PATIENT
  Age: 43 Year
  Sex: Male
  Weight: 82 kg

DRUGS (6)
  1. ROACTEMRA [Suspect]
     Active Substance: TOCILIZUMAB
     Indication: RHEUMATOID ARTHRITIS
     Dosage: 8 MG/KG
     Route: 042
     Dates: start: 20140207
  2. PREDNISONE. [Concomitant]
     Active Substance: PREDNISONE
     Route: 048
  3. ROACTEMRA [Suspect]
     Active Substance: TOCILIZUMAB
     Dosage: MOST RECENT DOSE PRIOR TO THE EVENT
     Route: 042
     Dates: start: 20140430
  4. ROACTEMRA [Suspect]
     Active Substance: TOCILIZUMAB
     Dosage: 8 MG/KG
     Route: 042
     Dates: start: 20140306
  5. METHOTREXATE [Concomitant]
     Active Substance: METHOTREXATE
     Route: 058
  6. ROACTEMRA [Suspect]
     Active Substance: TOCILIZUMAB
     Dosage: 8 MG/KG
     Route: 042
     Dates: start: 20140403

REACTIONS (3)
  - Infection [Recovered/Resolved with Sequelae]
  - Cellulitis [Recovered/Resolved with Sequelae]
  - Bursitis [Recovered/Resolved with Sequelae]

NARRATIVE: CASE EVENT DATE: 20140506
